FAERS Safety Report 21079607 (Version 1)
Quarter: 2022Q3

REPORT INFORMATION
  Report Type: Report from Study
  Country: BR (occurrence: BR)
  Receive Date: 20220714
  Receipt Date: 20220714
  Transmission Date: 20221027
  Serious: Yes (Other)
  Sender: FDA-Public Use
  Company Number: BR-NOVARTISPH-NVSC2022BR158775

PATIENT
  Sex: Female

DRUGS (1)
  1. DIOVAN HCT [Suspect]
     Active Substance: HYDROCHLOROTHIAZIDE\VALSARTAN
     Indication: Product used for unknown indication
     Dosage: UNK STRENGTH (160/12 AND A HALF) STARTED 20 YEARS AGO
     Route: 065

REACTIONS (4)
  - Deafness [Unknown]
  - Dysphonia [Unknown]
  - Influenza [Unknown]
  - Blood pressure increased [Unknown]
